FAERS Safety Report 7658111-3 (Version None)
Quarter: 2011Q3

REPORT INFORMATION
  Report Type: 
  Country: None (occurrence: None)
  Receive Date: 20110805
  Receipt Date: 20110801
  Transmission Date: 20111222
  Serious: Yes (Hospitalization)
  Sender: FDA-Public Use
  Company Number: US-GENZYME-CAMP-1001795

PATIENT
  Sex: Female

DRUGS (17)
  1. TYLENOL PM [Concomitant]
     Indication: INSOMNIA
     Dosage: 2 CAPS, UNK
     Route: 048
     Dates: start: 20110621
  2. MULTI-VITAMIN [Concomitant]
     Indication: PROPHYLAXIS
     Dosage: 1 TAB, QD
     Route: 048
     Dates: start: 20090218
  3. TRAZODONE HCL [Concomitant]
     Indication: INSOMNIA
     Dosage: 100 MG, QD
     Route: 048
     Dates: start: 20090916
  4. VITAMIN B12 NOS [Concomitant]
     Indication: PROPHYLAXIS
     Dosage: 1000 MG, QD
     Route: 048
     Dates: start: 20090218
  5. LOPERAMIDE HCL [Concomitant]
     Indication: DIARRHOEA
     Dosage: 2 MG, PRN
     Route: 048
     Dates: start: 20081001
  6. PROZAC [Concomitant]
     Indication: DEPRESSION
     Dosage: 60 MG, QD
     Route: 048
     Dates: start: 20110209
  7. RITALIN [Concomitant]
     Indication: FATIGUE
     Dosage: 10 MG, BID
     Route: 048
     Dates: start: 20110707
  8. VITAMIN D [Concomitant]
     Indication: PROPHYLAXIS
     Dosage: 1000 MG, QD
     Route: 048
     Dates: start: 20090218
  9. TYLENOL-500 [Concomitant]
     Indication: HEADACHE
     Dosage: 1000 MG, PRN
     Route: 048
     Dates: start: 19700101
  10. TYLENOL-500 [Concomitant]
     Indication: BACK PAIN
     Dosage: 1000 MG, PRN
     Route: 048
     Dates: start: 20100225
  11. VICODIN ES [Concomitant]
     Indication: HERPES ZOSTER
     Dosage: 1 TAB, TID
     Route: 048
     Dates: start: 20110309
  12. AMANTADINE HCL [Concomitant]
     Indication: FATIGUE
     Dosage: 100 MG, QD
     Route: 048
     Dates: start: 20110617
  13. ASCORBIC ACID [Concomitant]
     Indication: PROPHYLAXIS
     Dosage: 1000 MG, QD
     Route: 048
     Dates: start: 20090218
  14. ALEMTUZUMAB [Suspect]
     Indication: MULTIPLE SCLEROSIS
     Dosage: 12 MG, QDX5
     Route: 042
     Dates: start: 20090316, end: 20090320
  15. ALEMTUZUMAB [Suspect]
     Dosage: 12 MG, QDX3
     Route: 042
     Dates: start: 20100316, end: 20100318
  16. CALCIUM ACETATE [Concomitant]
     Indication: PROPHYLAXIS
     Dosage: 600 MG, QD
     Route: 048
     Dates: start: 20090218
  17. PROZAC [Concomitant]
     Indication: ANXIETY

REACTIONS (1)
  - DEEP VEIN THROMBOSIS [None]
